FAERS Safety Report 9759025 (Version 1)
Quarter: 2013Q4

REPORT INFORMATION
  Report Type: Spontaneous
  Country: FR (occurrence: FR)
  Receive Date: 20131216
  Receipt Date: 20131216
  Transmission Date: 20140711
  Serious: Yes (Life-Threatening, Hospitalization, Other)
  Sender: FDA-Public Use
  Company Number: FR-ELI_LILLY_AND_COMPANY-FR201312003113

PATIENT
  Age: 27 Year
  Sex: Male

DRUGS (7)
  1. ZYPREXA [Suspect]
     Indication: PRODUCT USED FOR UNKNOWN INDICATION
     Dosage: 10 MG, EACH EVENING
     Route: 048
  2. ZYPREXA [Suspect]
     Dosage: 810 MG, SINGLE
     Route: 048
     Dates: start: 20131029, end: 20131029
  3. LOXAPAC /00401801/ [Suspect]
     Indication: PRODUCT USED FOR UNKNOWN INDICATION
     Dosage: 25 MG, OTHER
     Route: 048
  4. LOXAPAC /00401801/ [Suspect]
     Dosage: 3000 MG, SINGLE
     Route: 048
     Dates: start: 20131029, end: 20131029
  5. ATARAX /00058401/ [Suspect]
     Indication: PRODUCT USED FOR UNKNOWN INDICATION
     Dosage: 25 MG, EACH EVENING
     Route: 048
  6. ATARAX /00058401/ [Suspect]
     Dosage: 1500 MG, SINGLE
     Route: 048
     Dates: start: 20131029, end: 20131029
  7. ALCOHOL [Concomitant]
     Indication: PRODUCT USED FOR UNKNOWN INDICATION
     Dosage: 1 DF, UNKNOWN
     Route: 048

REACTIONS (6)
  - Coma [Recovered/Resolved]
  - Toxicity to various agents [Unknown]
  - Respiratory rate increased [Unknown]
  - Blood pressure diastolic increased [Unknown]
  - Body temperature increased [Unknown]
  - Intentional overdose [Unknown]
